FAERS Safety Report 25602510 (Version 2)
Quarter: 2025Q3

REPORT INFORMATION
  Report Type: Spontaneous
  Country: US (occurrence: US)
  Receive Date: 20250724
  Receipt Date: 20250801
  Transmission Date: 20251021
  Serious: Yes (Other)
  Sender: ALCON
  Company Number: US-ALCON LABORATORIES-ALC2025US003673

PATIENT
  Age: 79 Year
  Sex: Male

DRUGS (8)
  1. BETADINE [Suspect]
     Active Substance: POVIDONE-IODINE
     Indication: Preoperative care
     Route: 047
     Dates: start: 20250507
  2. DUO-MEDIHALER [Suspect]
     Active Substance: ISOPROTERENOL HYDROCHLORIDE\PHENYLEPHRINE BITARTRATE
     Indication: Preoperative care
     Route: 065
     Dates: start: 20250507
  3. POVIDONE-IODINE [Suspect]
     Active Substance: POVIDONE-IODINE
     Indication: Sterilisation
     Route: 061
  4. STERILE WATER [Suspect]
     Active Substance: WATER
     Indication: Product used for unknown indication
     Route: 065
     Dates: start: 20250507
  5. TETRACAINE HCL [Suspect]
     Active Substance: TETRACAINE HYDROCHLORIDE
     Indication: Preoperative care
     Route: 047
     Dates: start: 20250507
  6. KETOROLAC [Concomitant]
     Active Substance: KETOROLAC TROMETHAMINE
     Indication: Postoperative care
     Route: 065
  7. MOXIFLOXACIN [Concomitant]
     Active Substance: MOXIFLOXACIN
     Indication: Postoperative care
     Route: 065
  8. PREDNISONE [Concomitant]
     Active Substance: PREDNISONE
     Indication: Postoperative care
     Route: 065

REACTIONS (1)
  - Endophthalmitis [Not Recovered/Not Resolved]

NARRATIVE: CASE EVENT DATE: 20250521
